FAERS Safety Report 8156437-0 (Version None)
Quarter: 2012Q1

REPORT INFORMATION
  Report Type: 
  Country: None (occurrence: None)
  Receive Date: 20120222
  Receipt Date: 20120216
  Transmission Date: 20120608
  Serious: Yes (Death)
  Sender: FDA-Public Use
  Company Number: US-CELGENEUS-163-21880-12021971

PATIENT
  Sex: Female

DRUGS (6)
  1. NOVOLIN R [Concomitant]
     Route: 065
  2. WELLBUTRIN [Concomitant]
     Route: 065
  3. VITAMIN D [Concomitant]
     Route: 065
  4. NITROFURANTOIN MACROCRYSTAL [Concomitant]
     Route: 065
  5. WELCHOL [Concomitant]
     Route: 065
  6. REVLIMID [Suspect]
     Indication: MULTIPLE MYELOMA
     Dosage: 25 MILLIGRAM
     Route: 048
     Dates: start: 20120202

REACTIONS (1)
  - DEATH [None]
